FAERS Safety Report 8624942-6 (Version None)
Quarter: 2012Q3

REPORT INFORMATION
  Report Type: 
  Country: None (occurrence: None)
  Receive Date: 20120827
  Receipt Date: 20120816
  Transmission Date: 20120928
  Serious: Yes (Other)
  Sender: FDA-Public Use
  Company Number: DE-PFIZER INC-2012196888

PATIENT
  Age: 36 Year
  Sex: Female
  Weight: 104 kg

DRUGS (5)
  1. NEBIVOLOL HCL [Suspect]
     Indication: HYPERTENSION
     Dosage: 5 MG, 1X/DAY
     Route: 048
  2. RAMIPRIL [Suspect]
     Dosage: 5 MG, 1X/DAY
     Route: 048
  3. RAMIPRIL [Suspect]
     Dosage: 2.5 MG, 1X/DAY
     Route: 048
  4. VITAVERLAN [Concomitant]
     Indication: PROPHYLAXIS OF NEURAL TUBE DEFECT
     Dosage: 0.4 UG, 1X/DAY
     Route: 048
     Dates: start: 20110829, end: 20120405
  5. LEVOTHYROXINE SODIUM [Concomitant]
     Indication: HYPOTHYROIDISM
     Dosage: 50 UG, 1X/DAY
     Route: 048

REACTIONS (4)
  - BREECH PRESENTATION [None]
  - OLIGOHYDRAMNIOS [None]
  - PREMATURE RUPTURE OF MEMBRANES [None]
  - GESTATIONAL DIABETES [None]
